FAERS Safety Report 8236848-5 (Version None)
Quarter: 2012Q1

REPORT INFORMATION
  Report Type: 
  Country: None (occurrence: None)
  Receive Date: 20120327
  Receipt Date: 20120323
  Transmission Date: 20120608
  Serious: Yes (Hospitalization, Other)
  Sender: FDA-Public Use
  Company Number: US-PFIZER INC-2012076123

PATIENT
  Sex: Female
  Weight: 83.9 kg

DRUGS (2)
  1. COUMADIN [Concomitant]
     Dosage: UNK
     Dates: end: 20120301
  2. SUTENT [Suspect]
     Indication: RENAL CANCER
     Dosage: 50 MG, DAILY
     Dates: start: 20120308, end: 20120312

REACTIONS (13)
  - APHAGIA [None]
  - DYSARTHRIA [None]
  - DEHYDRATION [None]
  - CARDIAC DISORDER [None]
  - RETCHING [None]
  - DIARRHOEA [None]
  - PLATELET COUNT DECREASED [None]
  - BEDRIDDEN [None]
  - ASTHENIA [None]
  - VOMITING [None]
  - BLOOD PRESSURE ABNORMAL [None]
  - CARDIAC FAILURE CONGESTIVE [None]
  - EYE DISORDER [None]
